FAERS Safety Report 4931613-6 (Version None)
Quarter: 2006Q1

REPORT INFORMATION
  Report Type: 
  Country: None (occurrence: None)
  Receive Date: 20060303
  Receipt Date: 20060222
  Transmission Date: 20060701
  Serious: Yes (Hospitalization)
  Sender: FDA-Public Use
  Company Number: IL-JNJFOC-20060201888

PATIENT
  Age: 1 Year
  Sex: Male

DRUGS (3)
  1. TOPAMAX [Suspect]
     Indication: CONVULSION
     Route: 048
  2. DANTOIN [Concomitant]
  3. LUMINAL [Concomitant]

REACTIONS (5)
  - HYPOHIDROSIS [None]
  - OFF LABEL USE [None]
  - PRURITUS [None]
  - PYREXIA [None]
  - RASH [None]
